FAERS Safety Report 10039432 (Version 1)
Quarter: 2014Q1

REPORT INFORMATION
  Report Type: Spontaneous
  Country: US (occurrence: None)
  Receive Date: 20140306
  Receipt Date: 20140306
  Transmission Date: 20141002
  Serious: Yes (Hospitalization, Other)
  Sender: FDA-Public Use
  Company Number: 163-21880-09090221

PATIENT
  Age: 60 Year
  Sex: Female

DRUGS (14)
  1. REVLIMID [Suspect]
     Indication: MONOCLONAL GAMMOPATHY
     Dosage: 15 MG, 21 IN 28 D, PO
     Route: 048
     Dates: start: 20090518
  2. PROPRANOLOL (PROPRANOLOL) (UNKNOWN) [Concomitant]
  3. HYDROCODON-ACETAMINOPH (VICODIN) (UNKNOWN) [Concomitant]
  4. CALCIUM + VITAMIN D (LEKOVIT CA) (UNKNOWN) [Concomitant]
  5. OMEPRAZOLE (OMEPRAZOLE) (UNKNOWN) [Concomitant]
  6. DAILY VALUE MULTIVITAMIN (MULTIVITAMINS) (TABLETS) [Concomitant]
  7. SINGULAIR (MONTELUKAST SODIUM) (UNKNOWN) [Concomitant]
  8. DEXAMETHASONE (DEXAMETHASONE) (UNKNOWN) [Concomitant]
  9. SYNTHROID (LEVOTHYROXINE SODIUM) (UNKNOWN) [Concomitant]
  10. DIOVAN (VALSARTAN) (UNKNOWN) [Concomitant]
  11. POTASSIUM CL (POTASSIUM CHLORIDE) (UNKNOWN) [Concomitant]
  12. METFORMIN (METFORMIN) (UNKNOWN) [Concomitant]
  13. LISINOPRIL (LISINOPRIL) (UNKNOWN) [Concomitant]
  14. GABAPENTIN (GABAPENTIN) (UNKNOWN) [Concomitant]

REACTIONS (2)
  - Deep vein thrombosis [None]
  - Local swelling [None]
